FAERS Safety Report 12655503 (Version 2)
Quarter: 2016Q3

REPORT INFORMATION
  Report Type: Spontaneous
  Country: US (occurrence: US)
  Receive Date: 20160816
  Receipt Date: 20160816
  Transmission Date: 20161109
  Serious: No
  Sender: FDA-Public Use
  Company Number: US-PFIZER INC-2016010116

PATIENT
  Sex: Female
  Weight: 56.5 kg

DRUGS (6)
  1. MICAFUNGIN [Suspect]
     Active Substance: MICAFUNGIN
     Dosage: UNK
  2. KETAMINE [Suspect]
     Active Substance: KETAMINE
     Dosage: UNK
  3. AMOXICILLIN. [Suspect]
     Active Substance: AMOXICILLIN
     Dosage: UNK
  4. AMPICILLIN SODIUM. [Suspect]
     Active Substance: AMPICILLIN SODIUM
     Dosage: UNK
  5. BENADRYL [Suspect]
     Active Substance: DIPHENHYDRAMINE HYDROCHLORIDE
     Dosage: UNK
  6. PEGASPARGASE [Suspect]
     Active Substance: PEGASPARGASE
     Dosage: UNK

REACTIONS (1)
  - Drug hypersensitivity [Unknown]
